FAERS Safety Report 8834308 (Version 1)
Quarter: 2012Q4

REPORT INFORMATION
  Report Type: 
  Country: US (occurrence: US)
  Receive Date: 20121010
  Receipt Date: 20121010
  Transmission Date: 20130627
  Serious: Yes (Other)
  Sender: FDA-Public Use
  Company Number: US-US-EMD SERONO, INC.-7165652

PATIENT
  Sex: Female

DRUGS (2)
  1. REBIF [Suspect]
     Indication: MULTIPLE SCLEROSIS
     Route: 058
     Dates: start: 200603, end: 201111
  2. REBIF [Suspect]
     Route: 058
     Dates: start: 20121002

REACTIONS (2)
  - Muscle twitching [Recovering/Resolving]
  - Intervertebral disc protrusion [Recovered/Resolved]
